FAERS Safety Report 4846131-3 (Version None)
Quarter: 2005Q4

REPORT INFORMATION
  Report Type: 
  Country: None (occurrence: None)
  Receive Date: 20051130
  Receipt Date: 20051117
  Transmission Date: 20060501
  Serious: Yes (Hospitalization, Other)
  Sender: FDA-Public Use
  Company Number: 2005158440

PATIENT
  Age: 70 Year
  Sex: Female

DRUGS (1)
  1. ZYVOX [Suspect]
     Indication: ILL-DEFINED DISORDER
     Dosage: (600 MG), ORAL
     Route: 048
     Dates: start: 20041112, end: 20041116

REACTIONS (1)
  - STEVENS-JOHNSON SYNDROME [None]
